FAERS Safety Report 10760118 (Version 1)
Quarter: 2015Q1

REPORT INFORMATION
  Report Type: Report from Study
  Country: US (occurrence: US)
  Receive Date: 20150204
  Receipt Date: 20150204
  Transmission Date: 20150721
  Serious: Yes (Hospitalization, Other)
  Sender: FDA-Public Use
  Company Number: US-AMGEN-USASL2015008801

PATIENT
  Age: 36 Year
  Sex: Female

DRUGS (1)
  1. ENBREL [Suspect]
     Active Substance: ETANERCEPT
     Indication: RHEUMATOID ARTHRITIS
     Dosage: 50 MG, QWK
     Route: 058

REACTIONS (6)
  - Bladder neck suspension [Unknown]
  - Shoulder operation [Unknown]
  - Hysterectomy [Unknown]
  - Injection site bruising [Unknown]
  - Meniscus injury [Unknown]
  - Foot deformity [Unknown]

NARRATIVE: CASE EVENT DATE: 200201
